FAERS Safety Report 16321448 (Version 1)
Quarter: 2019Q2

REPORT INFORMATION
  Report Type: Spontaneous
  Country: US (occurrence: US)
  Receive Date: 20190516
  Receipt Date: 20190516
  Transmission Date: 20190711
  Serious: No
  Sender: FDA-Public Use
  Company Number: US-MTPC-MPE2019-0002709

PATIENT

DRUGS (2)
  1. MULTIVITAMIN [Concomitant]
     Active Substance: VITAMINS
     Dosage: UNK
     Route: 065
  2. RADICAVA [Suspect]
     Active Substance: EDARAVONE
     Indication: AMYOTROPHIC LATERAL SCLEROSIS
     Dosage: 60 MILLIGRAM, QD
     Route: 042
     Dates: start: 201807, end: 20190109

REACTIONS (3)
  - Device related infection [Unknown]
  - Drug ineffective [Recovered/Resolved]
  - Disease progression [Unknown]
